FAERS Safety Report 9466985 (Version 2)
Quarter: 2013Q3

REPORT INFORMATION
  Report Type: Spontaneous
  Country: US (occurrence: US)
  Receive Date: 20130820
  Receipt Date: 20130820
  Transmission Date: 20140515
  Serious: Yes (Hospitalization, Other)
  Sender: FDA-Public Use
  Company Number: US-PFIZER INC-2013130034

PATIENT
  Age: 36 Year
  Sex: Male

DRUGS (6)
  1. DILANTIN [Suspect]
     Indication: CONVULSION
     Dosage: UNK
     Route: 048
     Dates: start: 20031202
  2. DILANTIN [Suspect]
     Dosage: 100 MG, UNK
     Route: 048
     Dates: start: 20031208
  3. DILANTIN [Suspect]
     Dosage: 300 MG, 1X/DAY
     Route: 048
     Dates: start: 20031229
  4. PROPOXY-N/APAP [Concomitant]
     Dosage: 100/650MG
     Dates: start: 20031220
  5. RANITIDINE [Concomitant]
     Dosage: 150 MG, UNK
     Dates: start: 20031222
  6. BISACODYL [Concomitant]
     Dosage: 5 MG, UNK
     Dates: start: 20031222

REACTIONS (2)
  - Stevens-Johnson syndrome [Unknown]
  - Toxic epidermal necrolysis [Unknown]
